FAERS Safety Report 6039871-4 (Version None)
Quarter: 2009Q1

REPORT INFORMATION
  Report Type: 
  Country: None (occurrence: None)
  Receive Date: 20090116
  Receipt Date: 20090106
  Transmission Date: 20090719
  Serious: Yes (Hospitalization)
  Sender: FDA-Public Use
  Company Number: US-BIOGENIDEC-2006BI005681

PATIENT
  Age: 61 Year
  Sex: Female

DRUGS (13)
  1. AVONEX [Suspect]
     Indication: MULTIPLE SCLEROSIS
     Route: 030
     Dates: start: 20031124, end: 20061221
  2. ZONEGRAN [Concomitant]
     Indication: DRUG USE FOR UNKNOWN INDICATION
  3. GABAPENTIN [Concomitant]
     Indication: DRUG USE FOR UNKNOWN INDICATION
  4. WELLBUTRIN [Concomitant]
     Indication: DRUG USE FOR UNKNOWN INDICATION
  5. PLAVIX [Concomitant]
     Indication: DRUG USE FOR UNKNOWN INDICATION
  6. AMANTADINE HCL [Concomitant]
     Indication: DRUG USE FOR UNKNOWN INDICATION
  7. GLIPIZIDE [Concomitant]
     Indication: DRUG USE FOR UNKNOWN INDICATION
  8. PROVIGIL [Concomitant]
     Indication: DRUG USE FOR UNKNOWN INDICATION
  9. LEXAPRO [Concomitant]
     Indication: DRUG USE FOR UNKNOWN INDICATION
  10. ACTOS [Concomitant]
     Indication: DRUG USE FOR UNKNOWN INDICATION
  11. LOVASTATIN [Concomitant]
     Indication: DRUG USE FOR UNKNOWN INDICATION
  12. FUROSEMIDE [Concomitant]
     Indication: DRUG USE FOR UNKNOWN INDICATION
  13. VITAMIN K [Concomitant]
     Indication: DRUG USE FOR UNKNOWN INDICATION

REACTIONS (7)
  - CONVULSION [None]
  - DIABETES MELLITUS [None]
  - LOCALISED INFECTION [None]
  - MULTIPLE SCLEROSIS RELAPSE [None]
  - OSTEOMYELITIS [None]
  - PERIPHERAL VASCULAR DISORDER [None]
  - POOR PERIPHERAL CIRCULATION [None]
